FAERS Safety Report 24749911 (Version 1)
Quarter: 2024Q4

REPORT INFORMATION
  Report Type: Spontaneous
  Country: US (occurrence: US)
  Receive Date: 20241218
  Receipt Date: 20241218
  Transmission Date: 20250115
  Serious: No
  Sender: SANOFI AVENTIS
  Company Number: US-SANOFI-02331777

PATIENT
  Age: 71 Year
  Sex: Male

DRUGS (2)
  1. APIDRA SOLOSTAR [Suspect]
     Active Substance: INSULIN GLULISINE
     Indication: Diabetes mellitus
     Dosage: UNK UNK, QD
  2. LANTUS [Concomitant]
     Active Substance: INSULIN GLARGINE
     Dosage: 20 UNITS IN THE MORNING AND 40 UNITS AT NIGHT, BID

REACTIONS (3)
  - Blood glucose increased [Unknown]
  - Drug effect less than expected [Unknown]
  - Incorrect dose administered [Unknown]
